FAERS Safety Report 4466016-4 (Version None)
Quarter: 2004Q3

REPORT INFORMATION
  Report Type: 
  Country: None (occurrence: None)
  Receive Date: 20040930
  Receipt Date: 20040921
  Transmission Date: 20050211
  Serious: Yes (Life-Threatening)
  Sender: FDA-Public Use
  Company Number: B0343192A

PATIENT
  Age: 57 Year
  Sex: Female

DRUGS (2)
  1. ALKERAN [Suspect]
     Dosage: 225 MG/M2
  2. GRANULOCYTE COL. STIM. FACT [Concomitant]

REACTIONS (14)
  - ATRIAL FIBRILLATION [None]
  - CANDIDIASIS [None]
  - DYSPNOEA [None]
  - FEBRILE NEUTROPENIA [None]
  - GENERAL PHYSICAL HEALTH DETERIORATION [None]
  - HERPES SIMPLEX [None]
  - LEFT VENTRICULAR FAILURE [None]
  - PNEUMONIA PRIMARY ATYPICAL [None]
  - PNEUMONITIS [None]
  - PULMONARY FIBROSIS [None]
  - PULMONARY OEDEMA [None]
  - PULMONARY TOXICITY [None]
  - SPUTUM CULTURE POSITIVE [None]
  - VIRAL INFECTION [None]
